FAERS Safety Report 20279880 (Version 1)
Quarter: 2021Q4

REPORT INFORMATION
  Report Type: Spontaneous
  Country: US (occurrence: None)
  Receive Date: 20211231
  Receipt Date: 20211231
  Transmission Date: 20220303
  Serious: Yes (Hospitalization)
  Sender: FDA-Public Use
  Company Number: None

PATIENT
  Age: 61 Year
  Sex: Female
  Weight: 56.7 kg

DRUGS (1)
  1. RITUXIMAB [Suspect]
     Active Substance: RITUXIMAB
     Dates: end: 20211122

REACTIONS (5)
  - Coronavirus test positive [None]
  - Hypophagia [None]
  - C-reactive protein increased [None]
  - Hypoxia [None]
  - Dyspnoea [None]

NARRATIVE: CASE EVENT DATE: 20211130
